FAERS Safety Report 5913083-4 (Version None)
Quarter: 2008Q4

REPORT INFORMATION
  Report Type: 
  Country: None (occurrence: None)
  Receive Date: 20081008
  Receipt Date: 20081008
  Transmission Date: 20090506
  Serious: Yes (Other)
  Sender: FDA-Public Use
  Company Number: None

PATIENT
  Age: 38 Year
  Sex: Male
  Weight: 99.7913 kg

DRUGS (2)
  1. LYRICA [Suspect]
     Indication: BRACHIAL PLEXOPATHY
     Dosage: 2 CAPLETS 2 TIMES A DAY ORALLY
     Route: 048
     Dates: start: 20080506, end: 20080606
  2. LYRICA [Suspect]
     Indication: NEUROPATHY PERIPHERAL
     Dosage: 2 CAPLETS 2 TIMES A DAY ORALLY
     Route: 048
     Dates: start: 20080506, end: 20080606

REACTIONS (1)
  - BLOOD GLUCOSE INCREASED [None]
